FAERS Safety Report 8310265-1 (Version None)
Quarter: 2012Q2

REPORT INFORMATION
  Report Type: 
  Country: None (occurrence: None)
  Receive Date: 20120425
  Receipt Date: 20120416
  Transmission Date: 20120825
  Serious: Yes (Hospitalization)
  Sender: FDA-Public Use
  Company Number: FR-FRI-1000020246

PATIENT
  Sex: Female

DRUGS (9)
  1. IMOVANE [Concomitant]
     Dosage: 1 DF
  2. HEPT-A-MYL [Concomitant]
  3. CITALOPRAM HYDROBROMIDE [Suspect]
     Indication: DEPRESSION
     Dosage: 20 MG
     Route: 048
  4. PRAXINOR [Concomitant]
     Indication: HYPOTENSION
  5. RISPERDAL [Suspect]
     Indication: DEPRESSION
     Dosage: 2 MG
     Route: 048
  6. CITALOPRAM HYDROBROMIDE [Suspect]
     Dosage: 40 MG
     Route: 048
  7. LEXOMIL [Concomitant]
     Dosage: 1.5 DF
  8. RISPERDAL [Suspect]
     Dosage: 4 MG
     Route: 048
  9. VALPROIC ACID [Suspect]
     Indication: DEPRESSION
     Dosage: 600 MG
     Route: 048
     Dates: end: 20110307

REACTIONS (4)
  - ORTHOSTATIC HYPOTENSION [None]
  - DISORIENTATION [None]
  - GENERAL PHYSICAL HEALTH DETERIORATION [None]
  - EXTRAPYRAMIDAL DISORDER [None]
